FAERS Safety Report 7683651-0 (Version None)
Quarter: 2011Q3

REPORT INFORMATION
  Report Type: 
  Country: None (occurrence: None)
  Receive Date: 20110808
  Receipt Date: 20110727
  Transmission Date: 20111222
  Serious: Yes (Other)
  Sender: FDA-Public Use
  Company Number: 2011027490

PATIENT
  Age: 45 Year
  Sex: Female
  Weight: 108.8633 kg

DRUGS (12)
  1. AMARYL [Concomitant]
  2. ZYRTEC [Concomitant]
  3. FORADIL [Concomitant]
  4. HIZENTRA [Suspect]
  5. PULMICORT [Concomitant]
  6. PROAIR (PROCATEROL HYDROCHLORIDE) [Concomitant]
  7. NEXIUM [Concomitant]
  8. HIZENTRA [Suspect]
     Indication: SELECTIVE IGG SUBCLASS DEFICIENCY
     Dosage: SEE IMAGE
     Route: 058
     Dates: start: 20110124
  9. SPIRIVA [Concomitant]
  10. SPIRONOLACTONE [Concomitant]
  11. AVAPRO [Concomitant]
  12. ZETIA (ZETIMIBE) [Concomitant]

REACTIONS (3)
  - SINUSITIS [None]
  - HEADACHE [None]
  - NAUSEA [None]
